FAERS Safety Report 19504236 (Version 2)
Quarter: 2024Q2

REPORT INFORMATION
  Report Type: Spontaneous
  Country: US (occurrence: None)
  Receive Date: 20210708
  Receipt Date: 20240604
  Transmission Date: 20240715
  Serious: Yes (Death, Life-Threatening, Other)
  Sender: FDA-Public Use
  Company Number: US-ROCHE-2414173

PATIENT
  Age: 70 Year
  Sex: Female

DRUGS (1)
  1. KLONOPIN [Suspect]
     Active Substance: CLONAZEPAM
     Indication: Insomnia
     Route: 048
     Dates: start: 20110601, end: 201804

REACTIONS (22)
  - Cardiac arrest [Fatal]
  - Seizure [Unknown]
  - Accidental poisoning [Unknown]
  - Haematological infection [Unknown]
  - Organ failure [Unknown]
  - Liver injury [Unknown]
  - Intracranial mass [Unknown]
  - Meningioma [Unknown]
  - Brain oedema [Unknown]
  - Cerebral mass effect [Unknown]
  - Mitral valve incompetence [Unknown]
  - Cardiac failure congestive [Unknown]
  - Deep vein thrombosis [Unknown]
  - Major depression [Unknown]
  - Hypotension [Unknown]
  - Renal injury [Unknown]
  - Brain neoplasm [Unknown]
  - Muscular weakness [Unknown]
  - Arthritis [Unknown]
  - Osteoporosis [Unknown]
  - Anxiety [Unknown]
  - Obesity [Unknown]
